FAERS Safety Report 24660753 (Version 1)
Quarter: 2024Q4

REPORT INFORMATION
  Report Type: Spontaneous
  Country: PL (occurrence: None)
  Receive Date: 20241125
  Receipt Date: 20241125
  Transmission Date: 20250114
  Serious: Yes (Hospitalization)
  Sender: Public
  Company Number: None

PATIENT
  Age: 54 Year
  Sex: 0
  Weight: 89 kg

DRUGS (5)
  1. ITOPRIDE HYDROCHLORIDE [Suspect]
     Active Substance: ITOPRIDE HYDROCHLORIDE
     Indication: Functional gastrointestinal disorder
     Dosage: FREQUENCY : DAILY;?
  2. AMOXICILLIN [Suspect]
     Active Substance: AMOXICILLIN
     Indication: Functional gastrointestinal disorder
     Dosage: FREQUENCY : DAILY;?
  3. HYDROXYZINE [Concomitant]
  4. FLUOXETINE [Concomitant]
  5. CLORAZEPATE DIPOTASSIUM [Concomitant]
     Active Substance: CLORAZEPATE DIPOTASSIUM

REACTIONS (3)
  - Sinusitis bacterial [None]
  - Rash [None]
  - Bronchospasm [None]

NARRATIVE: CASE EVENT DATE: 20241111
